FAERS Safety Report 18683162 (Version 1)
Quarter: 2020Q4

REPORT INFORMATION
  Report Type: Spontaneous
  Country: US (occurrence: US)
  Receive Date: 20201230
  Receipt Date: 20201230
  Transmission Date: 20210114
  Serious: Yes (Hospitalization)
  Sender: FDA-Public Use
  Company Number: US-JNJFOC-20201241739

PATIENT
  Sex: Female
  Weight: 90.8 kg

DRUGS (2)
  1. TOPAMAX [Suspect]
     Active Substance: TOPIRAMATE
     Indication: PANIC ATTACK
     Route: 048
  2. TOPAMAX [Suspect]
     Active Substance: TOPIRAMATE
     Route: 048

REACTIONS (4)
  - Hypersomnia [Unknown]
  - Off label use [Unknown]
  - Panic attack [Unknown]
  - Product use in unapproved indication [Unknown]
